FAERS Safety Report 24432761 (Version 1)
Quarter: 2024Q4

REPORT INFORMATION
  Report Type: Spontaneous
  Country: IT (occurrence: IT)
  Receive Date: 20241014
  Receipt Date: 20241014
  Transmission Date: 20250114
  Serious: Yes (Life-Threatening)
  Sender: SERVIER
  Company Number: None

PATIENT

DRUGS (1)
  1. ONCASPAR [Suspect]
     Active Substance: PEGASPARGASE
     Indication: Acute lymphocytic leukaemia
     Dosage: 1970 IU
     Route: 042
     Dates: start: 20240822, end: 20240822

REACTIONS (3)
  - Oxygen saturation decreased [Recovered/Resolved]
  - Chest pain [Recovered/Resolved]
  - Hypoxia [Recovered/Resolved]

NARRATIVE: CASE EVENT DATE: 20240822
